FAERS Safety Report 10411935 (Version 2)
Quarter: 2014Q4

REPORT INFORMATION
  Report Type: Spontaneous
  Country: US (occurrence: None)
  Receive Date: 20140604
  Receipt Date: 20141010
  Transmission Date: 20150528
  Serious: Yes (Hospitalization)
  Sender: FDA-Public Use
  Company Number: 163-POMAL-14045554

PATIENT
  Age: 62 Year
  Sex: Female
  Weight: 61.3 kg

DRUGS (19)
  1. ROPINIROLE. [Concomitant]
     Active Substance: ROPINIROLE
  2. CALCIUM [Concomitant]
     Active Substance: CALCIUM
  3. MULTIVITAMINS [Concomitant]
     Active Substance: VITAMINS
  4. ASPIRIN (ACETYLSALICYLIC ACID) [Concomitant]
     Active Substance: ASPIRIN
  5. KLOR CON (POTASSIUM CHLORIDE) [Concomitant]
  6. OMEGA 3 (FISH OIL) [Concomitant]
     Active Substance: OMEGA-3 FATTY ACIDS
  7. DEXAMETHASONE. [Concomitant]
     Active Substance: DEXAMETHASONE
  8. OMEPRAZOLE. [Concomitant]
     Active Substance: OMEPRAZOLE
  9. ZOLEDRONIC ACID [Concomitant]
     Active Substance: ZOLEDRONIC ACID
  10. FENTANYL. [Concomitant]
     Active Substance: FENTANYL
  11. POMALYST [Suspect]
     Active Substance: POMALIDOMIDE
     Indication: PLASMA CELL MYELOMA
     Dosage: 4 MG, 21 IN 21 D
     Route: 048
     Dates: start: 201402
  12. LEVOTHYROXINE [Concomitant]
     Active Substance: LEVOTHYROXINE
  13. CRESTOR [Concomitant]
     Active Substance: ROSUVASTATIN CALCIUM
  14. SULFAMETHOXAZOLE AND TRIMETHOPRIM [Concomitant]
     Active Substance: SULFAMETHOXAZOLE\TRIMETHOPRIM
  15. ACYCLOVIR (ACICLOVIR) (ACICLOVIR) [Concomitant]
     Active Substance: ACYCLOVIR
  16. GABAPENTIN. [Concomitant]
     Active Substance: GABAPENTIN
  17. ZOLPIDEM [Concomitant]
     Active Substance: ZOLPIDEM\ZOLPIDEM TARTRATE
  18. CLARITHROMYCIN. [Concomitant]
     Active Substance: CLARITHROMYCIN
  19. ZOFRAN (ONDANSETRON HYDROCHLORIDE) [Concomitant]

REACTIONS (6)
  - Vomiting [None]
  - Anaemia [None]
  - Nausea [None]
  - Platelet count decreased [None]
  - Confusional state [None]
  - Neutropenia [None]

NARRATIVE: CASE EVENT DATE: 201404
